FAERS Safety Report 5737117-5 (Version None)
Quarter: 2008Q2

REPORT INFORMATION
  Report Type: 
  Country: None (occurrence: None)
  Receive Date: 20080513
  Receipt Date: 20080513
  Transmission Date: 20081010
  Serious: No
  Sender: FDA-Public Use
  Company Number: None

PATIENT
  Sex: Male
  Weight: 108.8633 kg

DRUGS (1)
  1. AMLODIPINE BESYLATE [Suspect]
     Indication: HYPERTENSION
     Dosage: ONE TABLET DAILY PO
     Route: 048
     Dates: start: 20071009

REACTIONS (6)
  - ABNORMAL DREAMS [None]
  - ARTHRALGIA [None]
  - DIZZINESS [None]
  - FATIGUE [None]
  - JOINT SWELLING [None]
  - MUSCLE SPASMS [None]
